FAERS Safety Report 8054880-1 (Version None)
Quarter: 2012Q1

REPORT INFORMATION
  Report Type: 
  Country: None (occurrence: None)
  Receive Date: 20120119
  Receipt Date: 20120118
  Transmission Date: 20120608
  Serious: Yes (Other)
  Sender: FDA-Public Use
  Company Number: US-JNJFOC-20120106470

PATIENT
  Age: 50 Year
  Sex: Female

DRUGS (1)
  1. NICOTINE [Suspect]
     Indication: SMOKING CESSATION THERAPY
     Dosage: TEN OR MORE PIECES A DAY
     Route: 048
     Dates: start: 20110101

REACTIONS (3)
  - DRUG ADMINISTRATION ERROR [None]
  - PRODUCT QUALITY ISSUE [None]
  - NICOTINE DEPENDENCE [None]
